FAERS Safety Report 9058067 (Version 1)
Quarter: 2013Q1

REPORT INFORMATION
  Report Type: Spontaneous
  Country: US (occurrence: None)
  Receive Date: 20130204
  Receipt Date: 20130204
  Transmission Date: 20140127
  Serious: No
  Sender: FDA-Public Use
  Company Number: None

PATIENT
  Age: 85 Year
  Sex: Female
  Weight: 73.03 kg

DRUGS (2)
  1. CIPROFLOXACIN [Suspect]
     Indication: URINARY TRACT INFECTION
     Dosage: (2 PILLS)  500 MG TWICE DAILY
     Dates: start: 20121218
  2. CEPHALEXIN [Suspect]
     Indication: URINARY TRACT INFECTION
     Dosage: 6 PILLS 500 MG THREE DAILY
     Dates: start: 20130101

REACTIONS (4)
  - Lip swelling [None]
  - Glossodynia [None]
  - Rash erythematous [None]
  - Pain [None]
